FAERS Safety Report 5099508-8 (Version None)
Quarter: 2006Q3

REPORT INFORMATION
  Report Type: 
  Country: None (occurrence: None)
  Receive Date: 20060908
  Receipt Date: 20060825
  Transmission Date: 20061208
  Serious: Yes (Death, Hospitalization, Other)
  Sender: FDA-Public Use
  Company Number: PHBS2006US13342

PATIENT
  Age: 62 Year
  Sex: Female

DRUGS (12)
  1. PAMIDRONATE DISODIUM [Suspect]
     Indication: BREAST CANCER METASTATIC
     Dosage: 90 MG, QMO
     Route: 042
     Dates: start: 19960101
  2. GOSERELIN [Concomitant]
     Route: 065
     Dates: start: 19950301
  3. PROGESTERONE [Concomitant]
     Route: 065
     Dates: end: 19970301
  4. ANASTROZOLE [Concomitant]
     Dosage: UNK, UNK
     Route: 065
     Dates: start: 19970301, end: 20000401
  5. FULVESTRANT [Concomitant]
     Dosage: UNK, MONTHLY
     Route: 065
     Dates: start: 20020901
  6. AMINOGLUTETHIMIDE [Concomitant]
     Dosage: 250 MG, BID
     Route: 065
     Dates: start: 20000501, end: 20001101
  7. RADIATION THERAPY [Concomitant]
     Dosage: TO MIDTHORACIC SPINE (30 GY)
     Dates: start: 20000508, end: 20000519
  8. PACLITAXEL [Concomitant]
     Dosage: 80 MG/M2, WEEKLY FOR 3 WEEKS EVERY MONTH
     Dates: start: 20001101, end: 20010601
  9. CAPECITABINE [Concomitant]
     Route: 065
     Dates: start: 20010201, end: 20010601
  10. EXEMESTANE [Concomitant]
     Dosage: 25 MG/D
     Route: 065
     Dates: start: 20010701, end: 20011201
  11. CYCLOPHOSPHAMIDE + DOXORUBICIN + 5-FU [Concomitant]
     Dosage: UNK, UNK
     Route: 065
     Dates: start: 20020101, end: 20020901
  12. AMOXICILLIN [Concomitant]
     Route: 065

REACTIONS (17)
  - BACTERIAL INFECTION [None]
  - BONE DISORDER [None]
  - BONE PAIN [None]
  - COMPUTERISED TOMOGRAM ABNORMAL [None]
  - DIARRHOEA [None]
  - HIP ARTHROPLASTY [None]
  - MALIGNANT NEOPLASM PROGRESSION [None]
  - MOUTH ULCERATION [None]
  - MUCOSAL INFLAMMATION [None]
  - NEUTROPENIA [None]
  - ORAL SURGERY [None]
  - OSTEONECROSIS [None]
  - PALMAR-PLANTAR ERYTHRODYSAESTHESIA SYNDROME [None]
  - PRIMARY SEQUESTRUM [None]
  - TOOTH ABSCESS [None]
  - TOOTH EXTRACTION [None]
  - WOUND COMPLICATION [None]
